FAERS Safety Report 10150138 (Version 1)
Quarter: 2014Q2

REPORT INFORMATION
  Report Type: Spontaneous
  Country: BR (occurrence: BR)
  Receive Date: 20140502
  Receipt Date: 20140502
  Transmission Date: 20141212
  Serious: Yes (Hospitalization)
  Sender: FDA-Public Use
  Company Number: BR-GLAXOSMITHKLINE-A1071484A

PATIENT
  Age: 41 Year
  Sex: Male
  Weight: 103 kg

DRUGS (6)
  1. AEROLIN [Suspect]
     Indication: ASTHMA
     Dosage: 4MG TWICE PER DAY
     Route: 048
     Dates: start: 1992
  2. TEGRETOL [Suspect]
     Indication: BIPOLAR DISORDER
     Dosage: 200MG THREE TIMES PER DAY
     Route: 048
     Dates: start: 20140411
  3. LEVOMEPROMAZINE HYDROCHLORIDE [Suspect]
     Indication: SOMNOLENCE
     Dosage: 200MG AT NIGHT
     Route: 048
  4. LITHIUM [Suspect]
     Indication: BIPOLAR DISORDER
     Dosage: 2TAB PER DAY
     Route: 048
     Dates: start: 2005
  5. DIAZEPAM [Concomitant]
  6. QUETIAPINE [Concomitant]

REACTIONS (8)
  - Overdose [Recovered/Resolved]
  - Toxicity to various agents [Unknown]
  - Oedema [Recovering/Resolving]
  - Burning sensation [Recovering/Resolving]
  - Renal disorder [Recovered/Resolved]
  - Lung infection [Recovered/Resolved]
  - Hallucination [Unknown]
  - Hallucination, auditory [Unknown]
